FAERS Safety Report 25271337 (Version 1)
Quarter: 2025Q2

REPORT INFORMATION
  Report Type: Spontaneous
  Country: FR (occurrence: FR)
  Receive Date: 20250506
  Receipt Date: 20250506
  Transmission Date: 20250717
  Serious: Yes (Hospitalization, Other)
  Sender: HIKMA
  Company Number: None

PATIENT
  Age: 61 Year
  Sex: Male
  Weight: 110 kg

DRUGS (2)
  1. ATRACURIUM [Suspect]
     Active Substance: ATRACURIUM
     Indication: Anaesthesia
     Route: 042
     Dates: start: 20250408, end: 20250408
  2. CEFAZOLIN [Suspect]
     Active Substance: CEFAZOLIN
     Indication: Anaesthesia
     Route: 042
     Dates: start: 20250408, end: 20250408

REACTIONS (1)
  - Anaphylactic shock [Recovered/Resolved]

NARRATIVE: CASE EVENT DATE: 20250408
